FAERS Safety Report 7357340-6 (Version None)
Quarter: 2011Q1

REPORT INFORMATION
  Report Type: 
  Country: None (occurrence: None)
  Receive Date: 20110308
  Receipt Date: 20110221
  Transmission Date: 20110831
  Serious: Yes (Death)
  Sender: FDA-Public Use
  Company Number: TPA2011A00731

PATIENT
  Age: 82 Year
  Sex: Female

DRUGS (1)
  1. ACTOS [Suspect]
     Indication: TYPE 2 DIABETES MELLITUS
     Dosage: 15 MG, 1 IN 1 D, PER ORAL
     Route: 048
     Dates: start: 20090801, end: 20100425

REACTIONS (4)
  - MYOCARDIAL INFARCTION [None]
  - CHEST PAIN [None]
  - CARDIAC FAILURE CONGESTIVE [None]
  - DYSPNOEA [None]
